FAERS Safety Report 24567640 (Version 2)
Quarter: 2024Q4

REPORT INFORMATION
  Report Type: Report from Study
  Country: US (occurrence: US)
  Receive Date: 20241031
  Receipt Date: 20241211
  Transmission Date: 20250115
  Serious: Yes (Hospitalization)
  Sender: ROCHE
  Company Number: US-ROCHE-10000114044

PATIENT
  Age: 60 Year
  Sex: Female
  Weight: 102.05 kg

DRUGS (10)
  1. OCREVUS [Suspect]
     Active Substance: OCRELIZUMAB
     Indication: Multiple sclerosis
     Route: 042
     Dates: start: 20210819
  2. OZEMPIC [Suspect]
     Active Substance: SEMAGLUTIDE
     Indication: Product used for unknown indication
     Route: 065
     Dates: end: 2024
  3. VITAMIN D3 [Concomitant]
     Active Substance: CHOLECALCIFEROL
     Indication: Multiple sclerosis
     Route: 048
  4. XARELTO [Concomitant]
     Active Substance: RIVAROXABAN
     Indication: Anticoagulant therapy
     Route: 048
  5. GLIMEPIRIDE [Concomitant]
     Active Substance: GLIMEPIRIDE
     Dosage: A HALF HOUR BEFORE I EAT
     Route: 048
     Dates: start: 2023
  6. BASAGLAR [Concomitant]
     Active Substance: INSULIN GLARGINE
     Indication: Glycosylated haemoglobin decreased
     Dosage: AT NIGHT
     Route: 058
  7. METOPROLOL [Concomitant]
     Active Substance: METOPROLOL
     Indication: Hypertension
     Route: 048
     Dates: start: 2019
  8. ESCITALOPRAM [Concomitant]
     Active Substance: ESCITALOPRAM OXALATE
     Indication: Depression
     Route: 048
  9. BUPROPION [Concomitant]
     Active Substance: BUPROPION
     Indication: Depression
     Dosage: REAL EARLY
     Route: 048
     Dates: start: 202408
  10. FENOFIBRATE [Concomitant]
     Active Substance: FENOFIBRATE
     Indication: Blood cholesterol
     Route: 048

REACTIONS (17)
  - Pruritus [Recovered/Resolved]
  - Cellulitis [Recovered/Resolved]
  - Swelling [Unknown]
  - Oral mucosal discolouration [Unknown]
  - Rash [Recovered/Resolved]
  - Pain [Not Recovered/Not Resolved]
  - Fall [Unknown]
  - Joint dislocation [Recovered/Resolved]
  - Muscular weakness [Recovered/Resolved]
  - Inflammation [Recovered/Resolved]
  - Contusion [Recovered/Resolved]
  - Balance disorder [Recovered/Resolved]
  - Gait disturbance [Recovered/Resolved]
  - Blood glucose fluctuation [Not Recovered/Not Resolved]
  - Weight increased [Recovered/Resolved]
  - Amnesia [Not Recovered/Not Resolved]
  - Nodule [Unknown]

NARRATIVE: CASE EVENT DATE: 20230101
